FAERS Safety Report 9654329 (Version 2)
Quarter: 2013Q4

REPORT INFORMATION
  Report Type: Spontaneous
  Country: US (occurrence: US)
  Receive Date: 20131029
  Receipt Date: 20131031
  Transmission Date: 20140711
  Serious: Yes (Other)
  Sender: FDA-Public Use
  Company Number: US-TEVA-440094USA

PATIENT
  Sex: Male
  Weight: 79.45 kg

DRUGS (6)
  1. NUVIGIL [Suspect]
     Indication: NARCOLEPSY
     Dates: start: 2012, end: 2013
  2. NUVIGIL [Suspect]
     Indication: SOMNOLENCE
  3. PENICILLIN VK [Concomitant]
     Indication: PROPHYLAXIS
     Dosage: 1000 MILLIGRAM DAILY;
     Route: 048
  4. TENEX [Concomitant]
     Indication: PAEDIATRIC AUTOIMMUNE NEUROPSYCHIATRIC DISORDERS ASSOCIATED WITH STREPTOCOCCAL INFECTION
     Dosage: 1 MILLIGRAM DAILY;
     Route: 048
  5. TENEX [Concomitant]
     Indication: NARCOLEPSY
  6. TENEX [Concomitant]
     Indication: SOMNOLENCE

REACTIONS (2)
  - Depressed level of consciousness [Not Recovered/Not Resolved]
  - Insomnia [Not Recovered/Not Resolved]
